FAERS Safety Report 18771923 (Version 1)
Quarter: 2021Q1

REPORT INFORMATION
  Report Type: Spontaneous
  Country: US (occurrence: US)
  Receive Date: 20210122
  Receipt Date: 20210122
  Transmission Date: 20210419
  Serious: Yes (Hospitalization, Other)
  Sender: FDA-Public Use
  Company Number: US-AUROBINDO-AUR-APL-2021-002399

PATIENT
  Age: 16 Year
  Sex: Male

DRUGS (1)
  1. DIVALPROEX [Suspect]
     Active Substance: DIVALPROEX SODIUM
     Indication: EPILEPSY
     Dosage: UNK
     Route: 065

REACTIONS (11)
  - Acute kidney injury [Recovered/Resolved]
  - Metabolic acidosis [Unknown]
  - Haptoglobin decreased [Recovered/Resolved]
  - Anaemia [Recovered/Resolved]
  - Hepatic function abnormal [Unknown]
  - Haemolysis [Unknown]
  - Multiple organ dysfunction syndrome [Unknown]
  - Lactic acidosis [Unknown]
  - Toxicity to various agents [Unknown]
  - Thrombocytopenia [Recovered/Resolved]
  - Thrombotic microangiopathy [Recovered/Resolved]
